FAERS Safety Report 23502313 (Version 1)
Quarter: 2024Q1

REPORT INFORMATION
  Report Type: Spontaneous
  Country: US (occurrence: US)
  Receive Date: 20240208
  Receipt Date: 20240208
  Transmission Date: 20240409
  Serious: No
  Sender: FDA-Public Use
  Company Number: US-INTRA-CELLULAR THERAPIES, INC.-2023ICT00233

PATIENT
  Age: 39 Year
  Sex: Male

DRUGS (5)
  1. CAPLYTA [Suspect]
     Active Substance: LUMATEPERONE
     Indication: Schizoaffective disorder bipolar type
     Dosage: 42 MG
  2. VRAYLAR [Concomitant]
     Active Substance: CARIPRAZINE
  3. SEROQUEL [Concomitant]
     Active Substance: QUETIAPINE FUMARATE
  4. CLONAZEPAM [Concomitant]
     Active Substance: CLONAZEPAM
  5. COGENTIN [Concomitant]
     Active Substance: BENZTROPINE MESYLATE

REACTIONS (7)
  - Lethargy [Recovering/Resolving]
  - Balance disorder [Recovering/Resolving]
  - Speech disorder [Recovering/Resolving]
  - Memory impairment [Recovering/Resolving]
  - Paraesthesia [Recovering/Resolving]
  - Off label use [Recovered/Resolved]
  - Fall [Recovering/Resolving]
